FAERS Safety Report 7546049-1 (Version None)
Quarter: 2011Q2

REPORT INFORMATION
  Report Type: 
  Country: None (occurrence: None)
  Receive Date: 20110614
  Receipt Date: 20110601
  Transmission Date: 20111010
  Serious: Yes (Other)
  Sender: FDA-Public Use
  Company Number: PHEH2008US08371

PATIENT
  Sex: Male

DRUGS (8)
  1. ZOMETA [Suspect]
     Indication: MULTIPLE MYELOMA
     Route: 042
  2. OXYCODONE [Concomitant]
  3. GABAPENTIN [Concomitant]
  4. FENTANYL [Concomitant]
     Dosage: 125 UG, UNK
     Route: 042
  5. OXYCONTIN [Concomitant]
  6. NEXIUM [Concomitant]
  7. PERCOCET [Concomitant]
  8. AREDIA [Suspect]

REACTIONS (27)
  - OSTEONECROSIS OF JAW [None]
  - SENSORY LOSS [None]
  - VOMITING [None]
  - BARRETT'S OESOPHAGUS [None]
  - HIATUS HERNIA [None]
  - ARTHRITIS [None]
  - OSTEOARTHRITIS [None]
  - FEMUR FRACTURE [None]
  - NERVOUS SYSTEM DISORDER [None]
  - LOOSE TOOTH [None]
  - INFECTION [None]
  - TYPE 2 DIABETES MELLITUS [None]
  - PERONEAL NERVE PALSY [None]
  - HAEMORRHOIDS [None]
  - CONSTIPATION [None]
  - OSTEOMYELITIS [None]
  - NEOPLASM MALIGNANT [None]
  - DYSPEPSIA [None]
  - GASTROOESOPHAGEAL REFLUX DISEASE [None]
  - GASTRITIS [None]
  - ACETABULUM FRACTURE [None]
  - NAUSEA [None]
  - WEIGHT DECREASED [None]
  - PAIN [None]
  - MUSCLE ATROPHY [None]
  - METAPLASIA [None]
  - OESOPHAGITIS [None]
